FAERS Safety Report 8397288 (Version 2)
Quarter: 2013Q2

REPORT INFORMATION
  Report Type: Spontaneous
  Country: US (occurrence: None)
  Receive Date: 20111227
  Receipt Date: 20120426
  Transmission Date: 20140414
  Serious: No
  Sender: FDA-Public Use
  Company Number: PHEH2011US010361

PATIENT
  Age: 70 Year
  Sex: Female

DRUGS (5)
  1. GILENYA [Suspect]
     Indication: MULTIPLE SCLEROSIS
     Dosage: 0.5 MG, QD, ORAL
     Route: 048
     Dates: start: 20111109
  2. TOPROL XL [Concomitant]
  3. METAMUCIL [Concomitant]
  4. STOOL SOFTENER (DOCUSATE SODIUM) [Concomitant]
  5. RANEXA (RANOLAZINE) [Concomitant]

REACTIONS (7)
  - CONSTIPATION [None]
  - CHILLS [None]
  - FLUSHING [None]
  - VAGINAL MUCOSAL BLISTERING [None]
  - RASH [None]
  - ACNE [None]
  - HYPERTENSION [None]
